FAERS Safety Report 23592242 (Version 1)
Quarter: 2024Q1

REPORT INFORMATION
  Report Type: Spontaneous
  Country: ZA (occurrence: ZA)
  Receive Date: 20240304
  Receipt Date: 20240304
  Transmission Date: 20240409
  Serious: Yes (Hospitalization)
  Sender: FDA-Public Use
  Company Number: ZA-LUPIN PHARMACEUTICALS INC.-2024-01565

PATIENT

DRUGS (5)
  1. LOSARTAN POTASSIUM [Suspect]
     Active Substance: LOSARTAN POTASSIUM
     Indication: Hypertension
     Dosage: 1 DOSAGE FORM, QD
     Route: 048
  2. INDAPAMIDE [Suspect]
     Active Substance: INDAPAMIDE
     Indication: Hypertension
     Dosage: 1 DOSAGE FORM, QD
     Route: 048
  3. CARVEDILOL [Suspect]
     Active Substance: CARVEDILOL
     Indication: Hypertension
     Dosage: 1 DOSAGE FORM, QD
     Route: 048
  4. ATORVASTATIN [Suspect]
     Active Substance: ATORVASTATIN
     Indication: Blood cholesterol abnormal
     Dosage: 1 DOSAGE FORM, HS
     Route: 048
  5. OMEPRAZOLE [Suspect]
     Active Substance: OMEPRAZOLE
     Indication: Ulcer
     Dosage: 1 DOSAGE FORM, QD
     Route: 048

REACTIONS (1)
  - Cardiac disorder [Unknown]
